FAERS Safety Report 21727373 (Version 2)
Quarter: 2022Q4

REPORT INFORMATION
  Report Type: Spontaneous
  Country: US (occurrence: US)
  Receive Date: 20221214
  Receipt Date: 20221222
  Transmission Date: 20230112
  Serious: No
  Sender: FDA-Public Use
  Company Number: US-BRISTOL-MYERS SQUIBB COMPANY-2022-152094

PATIENT
  Age: 65 Year
  Sex: Male

DRUGS (1)
  1. REVLIMID [Suspect]
     Active Substance: LENALIDOMIDE
     Indication: B-cell lymphoma
     Dosage: DOSE : 15MG;     FREQ : 21 DAYS ON, 7 DAYS OFF
     Route: 048

REACTIONS (2)
  - Lung disorder [Unknown]
  - Off label use [Unknown]
